FAERS Safety Report 9732039 (Version 1)
Quarter: 2013Q4

REPORT INFORMATION
  Report Type: Spontaneous
  Country: US (occurrence: None)
  Receive Date: 20131203
  Receipt Date: 20131203
  Transmission Date: 20140711
  Serious: Yes (Death)
  Sender: FDA-Public Use
  Company Number: US-ALKEM-000359

PATIENT
  Age: 39 Year
  Sex: Female

DRUGS (9)
  1. GABAPENTIN (GABAPENTIN) [Suspect]
     Dosage: ORAL
     Route: 048
  2. IRON [Suspect]
     Dosage: ORAL
     Route: 048
  3. ACETAMINOPHEN W/HYDROCODONE [Suspect]
     Dosage: ORAL
     Route: 048
  4. CHLORZOXAZONE [Suspect]
     Dosage: ORAL
     Route: 048
  5. BENZONATATE [Suspect]
     Dosage: ORAL
     Route: 048
  6. FLUOXETINE [Suspect]
     Dosage: ORAL
     Route: 048
  7. OMEPRAZOLE(OMEPRAZOLE) [Suspect]
     Dosage: ORAL
     Route: 048
  8. TRAMADOL (TRAMADOL) [Suspect]
     Dosage: ORAL
     Route: 048
  9. VITAMIN D (VITAMIN D) [Suspect]
     Dosage: ORAL
     Route: 048

REACTIONS (3)
  - Completed suicide [None]
  - Wrong drug administered [None]
  - Overdose [None]
